FAERS Safety Report 4924657-1 (Version None)
Quarter: 2006Q1

REPORT INFORMATION
  Report Type: 
  Country: None (occurrence: None)
  Receive Date: 20060222
  Receipt Date: 20060206
  Transmission Date: 20060701
  Serious: No
  Sender: FDA-Public Use
  Company Number: 2006-138165-NL

PATIENT
  Age: 22 Year
  Sex: Female

DRUGS (3)
  1. MENOTROPINS [Suspect]
     Dosage: DF
  2. MENOTROPINS [Suspect]
     Dosage: DF
  3. CHORIONIC GONADOTROPIN [Suspect]
     Dosage: INTRAMUSCULAR
     Route: 030

REACTIONS (6)
  - ABORTION INCOMPLETE [None]
  - DRUG EXPOSURE DURING PREGNANCY [None]
  - HETEROTOPIC PREGNANCY [None]
  - PELVIC PAIN [None]
  - PREGNANCY [None]
  - VAGINAL HAEMORRHAGE [None]
